FAERS Safety Report 25256315 (Version 1)
Quarter: 2025Q2

REPORT INFORMATION
  Report Type: Spontaneous
  Country: US (occurrence: US)
  Receive Date: 20250430
  Receipt Date: 20250430
  Transmission Date: 20250716
  Serious: No
  Sender: BIOCRYST PHARMACEUTICALS
  Company Number: US-BIOCRYST PHARMACEUTICALS, INC.-2025BCR00275

PATIENT

DRUGS (28)
  1. ORLADEYO [Suspect]
     Active Substance: BEROTRALSTAT HYDROCHLORIDE
     Indication: Hereditary angioedema with normal C1 esterase inhibitor
     Dosage: 150 MG, QD
     Route: 048
  2. FLUCONAZOLE [Concomitant]
     Active Substance: FLUCONAZOLE
  3. METHOTREXATE [Concomitant]
     Active Substance: METHOTREXATE
  4. PREDNISONE [Concomitant]
     Active Substance: PREDNISONE
  5. PEPCID [Concomitant]
     Active Substance: FAMOTIDINE
  6. OMEPRAZOLE [Concomitant]
     Active Substance: OMEPRAZOLE
  7. ZOFRAN [Concomitant]
     Active Substance: ONDANSETRON HYDROCHLORIDE
  8. CALCIUM WITH VITAMIN D [CALCIUM CARBONATE;COLECALCIFEROL] [Concomitant]
  9. GABAPENTIN [Concomitant]
     Active Substance: GABAPENTIN
  10. ICATIBANT [Concomitant]
     Active Substance: ICATIBANT ACETATE
     Indication: Hereditary angioedema
  11. BENADRYL [Concomitant]
     Active Substance: DIPHENHYDRAMINE HYDROCHLORIDE
  12. CHOLECALCIFEROL [Concomitant]
     Active Substance: CHOLECALCIFEROL
  13. DRONABINOL [Concomitant]
     Active Substance: DRONABINOL
  14. FOLIC ACID [Concomitant]
     Active Substance: FOLIC ACID
  15. SINGULAIR [Concomitant]
     Active Substance: MONTELUKAST SODIUM
  16. XOPENEX [Concomitant]
     Active Substance: LEVALBUTEROL HYDROCHLORIDE
  17. COLCHICINE [Concomitant]
     Active Substance: COLCHICINE
  18. OXYCONTIN [Concomitant]
     Active Substance: OXYCODONE HYDROCHLORIDE
  19. ZYRTEC [Concomitant]
     Active Substance: CETIRIZINE HYDROCHLORIDE
  20. PERCOCET [Concomitant]
     Active Substance: ACETAMINOPHEN\OXYCODONE HYDROCHLORIDE
  21. HYDROXYCHLOROQUINE [Concomitant]
     Active Substance: HYDROXYCHLOROQUINE
  22. ADVAIR HFA [Concomitant]
     Active Substance: FLUTICASONE PROPIONATE\SALMETEROL XINAFOATE
  23. DUPIXENT [Concomitant]
     Active Substance: DUPILUMAB
  24. NYSTATIN [Concomitant]
     Active Substance: NYSTATIN
  25. MIRALAX [Concomitant]
     Active Substance: POLYETHYLENE GLYCOL 3350
  26. TAKHZYRO [Concomitant]
     Active Substance: LANADELUMAB-FLYO
  27. FIRAZYR [Concomitant]
     Active Substance: ICATIBANT ACETATE
  28. MONTELUKAST [Concomitant]
     Active Substance: MONTELUKAST

REACTIONS (1)
  - Pain [Not Recovered/Not Resolved]
